FAERS Safety Report 7455215-5 (Version None)
Quarter: 2011Q2

REPORT INFORMATION
  Report Type: 
  Country: None (occurrence: None)
  Receive Date: 20110503
  Receipt Date: 20110419
  Transmission Date: 20111010
  Serious: Yes (Death, Hospitalization)
  Sender: FDA-Public Use
  Company Number: US-JNJFOC-20110303388

PATIENT
  Sex: Female
  Weight: 42.64 kg

DRUGS (9)
  1. MERCAPTOPURINE [Concomitant]
     Indication: COLITIS ULCERATIVE
  2. MERCAPTOPURINE [Concomitant]
     Indication: CROHN'S DISEASE
  3. REMICADE [Suspect]
     Route: 042
  4. REMICADE [Suspect]
     Route: 042
  5. REMICADE [Suspect]
     Indication: CROHN'S DISEASE
     Route: 042
  6. REMICADE [Suspect]
     Indication: COLITIS ULCERATIVE
     Route: 042
  7. REMICADE [Suspect]
     Dosage: RECEIVED 3 OR 4 INFUSIONS
     Route: 042
  8. STEROIDS NOS [Concomitant]
     Indication: CROHN'S DISEASE
     Route: 065
  9. REMICADE [Suspect]
     Dosage: RECEIVED 3 OR 4 INFUSIONS
     Route: 042

REACTIONS (5)
  - ANTIBIOTIC RESISTANT STAPHYLOCOCCUS TEST [None]
  - CEREBROVASCULAR ACCIDENT [None]
  - ASPERGILLOSIS [None]
  - LARGE INTESTINE PERFORATION [None]
  - CYTOMEGALOVIRUS INFECTION [None]
